FAERS Safety Report 5071964-0 (Version None)
Quarter: 2006Q3

REPORT INFORMATION
  Report Type: 
  Country: None (occurrence: None)
  Receive Date: 20060801
  Receipt Date: 20060728
  Transmission Date: 20061208
  Serious: Yes (Other)
  Sender: FDA-Public Use
  Company Number: 2006US-03082

PATIENT
  Age: 15 Year
  Sex: Female

DRUGS (1)
  1. ISOTRETINOIN [Suspect]
     Dosage: SEE IMAGE

REACTIONS (2)
  - ALANINE AMINOTRANSFERASE INCREASED [None]
  - SWEAT DISCOLOURATION [None]
